FAERS Safety Report 9440175 (Version 2)
Quarter: 2013Q3

REPORT INFORMATION
  Report Type: Report from Study
  Country: US (occurrence: US)
  Receive Date: 20130805
  Receipt Date: 20130821
  Transmission Date: 20140515
  Serious: Yes (Life-Threatening, Hospitalization)
  Sender: FDA-Public Use
  Company Number: PHEH2013US016417

PATIENT
  Age: 77 Year
  Sex: Male

DRUGS (13)
  1. TASIGNA [Suspect]
     Indication: CHRONIC MYELOID LEUKAEMIA
     Dosage: 150 MG, BID
     Route: 048
     Dates: start: 20130401
  2. FUROSEMIDE [Concomitant]
  3. LIPITOR [Concomitant]
  4. TERAZOSIN [Concomitant]
  5. AMIODARONE HYDROCHLORIDE [Concomitant]
  6. CETRIZIN//CETIRIZINE HYDROCHLORIDE [Concomitant]
  7. METOPROLOL TARTRATE [Concomitant]
  8. POTASSIUM CL [Concomitant]
  9. ASPIRIN [Concomitant]
  10. LASIX [Concomitant]
  11. MIRALAX [Concomitant]
  12. PLAVIX [Concomitant]
  13. TYLENOL EXTRA STRENGTH [Concomitant]

REACTIONS (4)
  - Arterial occlusive disease [Unknown]
  - Heart rate decreased [Unknown]
  - Hypotension [Unknown]
  - Urinary tract infection [Unknown]
